FAERS Safety Report 7792914-X (Version None)
Quarter: 2011Q4

REPORT INFORMATION
  Report Type: 
  Country: None (occurrence: None)
  Receive Date: 20111003
  Receipt Date: 20110919
  Transmission Date: 20120403
  Serious: Yes (Hospitalization, Disabling)
  Sender: FDA-Public Use
  Company Number: PHEH2011US04506

PATIENT
  Sex: Female
  Weight: 67.7 kg

DRUGS (4)
  1. GLEEVEC [Suspect]
     Indication: CHRONIC MYELOID LEUKAEMIA
     Dosage: 400 MG, QD
     Route: 048
  2. VALIUM [Concomitant]
     Indication: ANXIETY
     Dosage: 2.5 MG, UNK
  3. SYNTHROID [Concomitant]
     Dosage: 75 MG,DAILY
     Route: 048
  4. OMEPRAZOLE [Concomitant]
     Dosage: 20 MG, BID

REACTIONS (3)
  - VOMITING [None]
  - ANAEMIA POSTOPERATIVE [None]
  - NAUSEA [None]
